FAERS Safety Report 6328963-8 (Version None)
Quarter: 2009Q3

REPORT INFORMATION
  Report Type: 
  Country: None (occurrence: None)
  Receive Date: 20090824
  Receipt Date: 20090824
  Transmission Date: 20100115
  Serious: No
  Sender: FDA-Public Use
  Company Number: None

PATIENT
  Sex: Female
  Weight: 72.5755 kg

DRUGS (1)
  1. ACETAZOLAMIDE [Suspect]
     Indication: MOUNTAIN SICKNESS ACUTE
     Dosage: 1 DAY BEFORE TRIP 1 DAILY UNTIL GON PO
     Route: 048
     Dates: start: 20090726, end: 20090727

REACTIONS (8)
  - COUGH [None]
  - DECREASED APPETITE [None]
  - DIZZINESS [None]
  - DYSGEUSIA [None]
  - FEELING ABNORMAL [None]
  - INCREASED UPPER AIRWAY SECRETION [None]
  - SOMNOLENCE [None]
  - TREMOR [None]
